FAERS Safety Report 18669787 (Version 1)
Quarter: 2020Q4

REPORT INFORMATION
  Report Type: Report from Study
  Country: PT (occurrence: PT)
  Receive Date: 20201228
  Receipt Date: 20201228
  Transmission Date: 20210114
  Serious: Yes (Hospitalization, Disabling)
  Sender: FDA-Public Use
  Company Number: PT-JNJFOC-20200800353

PATIENT
  Age: 43 Year
  Sex: Female
  Weight: 40 kg

DRUGS (11)
  1. IBUPROFEN. [Concomitant]
     Active Substance: IBUPROFEN
     Indication: PAIN PROPHYLAXIS
     Route: 048
     Dates: start: 20191007
  2. METILPREDNISOLONE [Concomitant]
     Active Substance: METHYLPREDNISOLONE
     Indication: ILL-DEFINED DISORDER
     Route: 042
     Dates: start: 20200525, end: 20200527
  3. USTEKINUMAB [Suspect]
     Active Substance: USTEKINUMAB
     Indication: SYSTEMIC LUPUS ERYTHEMATOSUS
     Route: 058
     Dates: start: 20191127, end: 20200518
  4. PREDNISONE. [Concomitant]
     Active Substance: PREDNISONE
     Route: 048
     Dates: start: 20191023
  5. IMMUNOGLOBULIN HUMAN NORMAL [Concomitant]
     Active Substance: HUMAN IMMUNOGLOBULIN G
     Indication: PROPHYLAXIS
     Route: 042
     Dates: start: 20200525, end: 20200529
  6. WARFARIN [Concomitant]
     Active Substance: WARFARIN
     Indication: ANTIPHOSPHOLIPID SYNDROME
     Route: 048
     Dates: start: 20191107
  7. WARFARIN [Concomitant]
     Active Substance: WARFARIN
     Route: 048
     Dates: start: 201109
  8. BISACODYL. [Concomitant]
     Active Substance: BISACODYL
     Indication: CONSTIPATION
     Route: 048
     Dates: start: 20200528, end: 20200601
  9. FAKTU [Concomitant]
     Indication: PAIN
     Route: 061
     Dates: start: 20200528
  10. HYDROXYCHLOROQUINE [Concomitant]
     Active Substance: HYDROXYCHLOROQUINE
     Route: 048
     Dates: start: 20190205
  11. PREDNISOLONE. [Concomitant]
     Active Substance: PREDNISOLONE
     Route: 048
     Dates: start: 20190701, end: 20191022

REACTIONS (1)
  - Neuropsychiatric lupus [Recovered/Resolved]

NARRATIVE: CASE EVENT DATE: 20200715
